FAERS Safety Report 6760805-9 (Version None)
Quarter: 2010Q2

REPORT INFORMATION
  Report Type: 
  Country: None (occurrence: None)
  Receive Date: 20100607
  Receipt Date: 20100607
  Transmission Date: 20101027
  Serious: Yes (Hospitalization)
  Sender: FDA-Public Use
  Company Number: None

PATIENT
  Sex: Male
  Weight: 77.5651 kg

DRUGS (2)
  1. NADOLOL [Suspect]
     Indication: MIGRAINE
     Dosage: 40 2 DAILY
     Dates: start: 20100531, end: 20100602
  2. NADOLOL [Suspect]
     Indication: OCCIPITAL NEURALGIA
     Dosage: 40 2 DAILY
     Dates: start: 20100531, end: 20100602

REACTIONS (9)
  - ANXIETY [None]
  - DIZZINESS [None]
  - FALL [None]
  - FEELING COLD [None]
  - HEART RATE DECREASED [None]
  - HYPOAESTHESIA [None]
  - MOTION SICKNESS [None]
  - PANIC DISORDER [None]
  - PHOTOPSIA [None]
